FAERS Safety Report 5941187-9 (Version None)
Quarter: 2008Q4

REPORT INFORMATION
  Report Type: 
  Country: None (occurrence: None)
  Receive Date: 20081104
  Receipt Date: 20081023
  Transmission Date: 20090506
  Serious: Yes (Other)
  Sender: FDA-Public Use
  Company Number: AR-PFIZER INC-2008089491

PATIENT
  Sex: Female
  Weight: 65 kg

DRUGS (5)
  1. ZOLOFT [Suspect]
     Indication: DEPRESSION
     Route: 048
     Dates: start: 20080801
  2. ZOLOFT [Suspect]
     Indication: BIPOLAR DISORDER
  3. OLANZAPINE [Concomitant]
     Route: 048
     Dates: start: 20080401
  4. LAMOTRIGINE [Concomitant]
     Route: 048
     Dates: start: 20080401
  5. LORAZEPAM [Concomitant]

REACTIONS (1)
  - WHITE BLOOD CELL COUNT INCREASED [None]
